FAERS Safety Report 4431321-4 (Version None)
Quarter: 2004Q3

REPORT INFORMATION
  Report Type: 
  Country: None (occurrence: None)
  Receive Date: 20040824
  Receipt Date: 20040405
  Transmission Date: 20050211
  Serious: No
  Sender: FDA-Public Use
  Company Number: US-BRISTOL-MYERS SQUIBB COMPANY-12551370

PATIENT
  Age: 47 Year
  Sex: Male
  Weight: 84 kg

DRUGS (11)
  1. SUSTIVA [Suspect]
     Indication: HIV INFECTION
     Route: 048
     Dates: start: 20040325
  2. INTERFERON [Suspect]
     Dosage: STOPPED SEVEN WEEKS PRIOR TO REPORTING
     Dates: start: 20031001, end: 20040101
  3. ANDROGEL [Concomitant]
  4. COLESTID [Concomitant]
  5. ENSURE [Concomitant]
  6. EPIVIR [Concomitant]
  7. KLONOPIN [Concomitant]
  8. MULTI-VITAMIN [Concomitant]
  9. SUDAFED S.A. [Concomitant]
  10. VIREAD [Concomitant]
  11. ZIAGEN [Concomitant]

REACTIONS (8)
  - ARTHRALGIA [None]
  - DYSPNOEA [None]
  - ERUCTATION [None]
  - FEELING ABNORMAL [None]
  - FEELING HOT [None]
  - PAIN IN EXTREMITY [None]
  - SENSATION OF PRESSURE [None]
  - SINUS PAIN [None]
